FAERS Safety Report 9775302 (Version 1)
Quarter: 2013Q4

REPORT INFORMATION
  Report Type: Spontaneous
  Country: US (occurrence: US)
  Receive Date: 20131220
  Receipt Date: 20131220
  Transmission Date: 20140711
  Serious: No
  Sender: FDA-Public Use
  Company Number: US-GALDERMA-US13003215

PATIENT
  Age: 23 Year
  Sex: Female
  Weight: 66 kg

DRUGS (5)
  1. MIRVASO (BRIMONIDINE) TOPICAL GEL, 0.33% [Suspect]
     Indication: ERYTHEMA
     Route: 061
     Dates: start: 20130924, end: 20130928
  2. NEOCUTIS CLEANSER [Concomitant]
     Indication: THERAPEUTIC SKIN CARE TOPICAL
     Route: 061
     Dates: start: 2011
  3. NEOCUTIS BIO CREAM MOISTURIZER [Concomitant]
     Indication: DRY SKIN PROPHYLAXIS
     Route: 061
     Dates: start: 2011
  4. NEOCUTIS PECHE [Concomitant]
     Indication: ERYTHEMA
     Route: 061
     Dates: start: 2011
  5. ACZONE (DAPSONE) 5% GEL [Concomitant]
     Indication: ACNE
     Route: 061

REACTIONS (4)
  - Feeling hot [Recovering/Resolving]
  - Erythema [Recovering/Resolving]
  - Flushing [Recovering/Resolving]
  - Off label use [Recovered/Resolved]
